FAERS Safety Report 11055322 (Version 2)
Quarter: 2015Q4

REPORT INFORMATION
  Report Type: Spontaneous
  Country: US (occurrence: US)
  Receive Date: 20150422
  Receipt Date: 20151011
  Transmission Date: 20160304
  Serious: No
  Sender: FDA-Public Use
  Company Number: US-LEO PHARMA-233752

PATIENT
  Age: 74 Year
  Sex: Female

DRUGS (2)
  1. IC IRBESARTAN [Concomitant]
     Indication: PRODUCT USED FOR UNKNOWN INDICATION
  2. PICATO [Suspect]
     Active Substance: INGENOL MEBUTATE
     Indication: ACTINIC KERATOSIS
     Route: 061
     Dates: start: 20150405

REACTIONS (3)
  - Application site erythema [Recovered/Resolved]
  - Product odour abnormal [Recovered/Resolved]
  - Application site reaction [Recovered/Resolved]

NARRATIVE: CASE EVENT DATE: 20150406
